FAERS Safety Report 20546673 (Version 3)
Quarter: 2022Q2

REPORT INFORMATION
  Report Type: Spontaneous
  Country: CH (occurrence: CH)
  Receive Date: 20220303
  Receipt Date: 20220506
  Transmission Date: 20220721
  Serious: Yes (Other)
  Sender: FDA-Public Use
  Company Number: CH-NOVARTISPH-NVSC2022CH047347

PATIENT
  Age: 67 Year
  Sex: Male

DRUGS (2)
  1. ZOLEDRONIC ACID [Suspect]
     Active Substance: ZOLEDRONIC ACID
     Indication: Metastases to bone
     Dosage: 4 MG (EVERY 28 DAYS)
     Route: 042
  2. SUNITINIB [Suspect]
     Active Substance: SUNITINIB
     Indication: Metastases to bone
     Dosage: 50 MG, QD (FOR 4 CONSECUTIVE WEEKS EVERY 6 WEEKS)
     Route: 048

REACTIONS (1)
  - Osteonecrosis of jaw [Unknown]
